FAERS Safety Report 5612266-0 (Version None)
Quarter: 2008Q1

REPORT INFORMATION
  Report Type: 
  Country: None (occurrence: None)
  Receive Date: 20080128
  Receipt Date: 20080116
  Transmission Date: 20080703
  Serious: Yes (Hospitalization, Congenital Anomaly)
  Sender: FDA-Public Use
  Company Number: 2008AL000306

PATIENT

DRUGS (3)
  1. CARBAMAZEPINE [Suspect]
     Indication: DRUG EXPOSURE DURING PREGNANCY
     Dosage: 650 MG;QD;TRPL
     Route: 064
  2. PHENOBARBITAL ELIXIR [Suspect]
     Indication: DRUG EXPOSURE DURING PREGNANCY
     Dosage: 130 MG;QD; TRPL
     Route: 064
  3. FOLIC ACID [Concomitant]

REACTIONS (8)
  - CAESAREAN SECTION [None]
  - CONGENITAL CYSTIC KIDNEY DISEASE [None]
  - DRUG EXPOSURE DURING PREGNANCY [None]
  - DYSMORPHISM [None]
  - FOETAL HEART RATE DECELERATION [None]
  - HYPERTELORISM OF ORBIT [None]
  - PROMINENT EPICANTHAL FOLDS [None]
  - RENAL DYSPLASIA [None]
